FAERS Safety Report 10744033 (Version 1)
Quarter: 2015Q1

REPORT INFORMATION
  Report Type: Spontaneous
  Country: US (occurrence: None)
  Receive Date: 20150123
  Receipt Date: 20150123
  Transmission Date: 20150721
  Serious: Yes (Other)
  Sender: FDA-Public Use
  Company Number: None

PATIENT
  Age: 55 Year
  Sex: Female
  Weight: 56.25 kg

DRUGS (1)
  1. MONTELUKAST SOD [Suspect]
     Active Substance: MONTELUKAST SODIUM
     Indication: HYPERSENSITIVITY
     Dosage: 1 TABLET WITH DINNER
     Route: 048
     Dates: start: 20150119, end: 20150120

REACTIONS (5)
  - Angina pectoris [None]
  - Heart rate irregular [None]
  - Fatigue [None]
  - Bronchitis [None]
  - Cardiac flutter [None]

NARRATIVE: CASE EVENT DATE: 20150121
